FAERS Safety Report 5822286-9 (Version None)
Quarter: 2008Q3

REPORT INFORMATION
  Report Type: 
  Country: None (occurrence: None)
  Receive Date: 20080725
  Receipt Date: 20080505
  Transmission Date: 20090109
  Serious: Yes (Hospitalization)
  Sender: FDA-Public Use
  Company Number: US-AMGEN-US278367

PATIENT
  Sex: Male
  Weight: 58.1 kg

DRUGS (5)
  1. EPOGEN [Suspect]
     Indication: RENAL FAILURE CHRONIC
     Route: 065
     Dates: start: 20080424
  2. TIGAN [Concomitant]
     Route: 065
     Dates: start: 20080414
  3. INSULIN [Concomitant]
     Route: 065
  4. CREON [Concomitant]
     Route: 065
  5. METOPROLOL TARTRATE [Concomitant]
     Route: 065
     Dates: start: 20080421

REACTIONS (2)
  - BLOOD PRESSURE INCREASED [None]
  - SWELLING [None]
